FAERS Safety Report 9549548 (Version 2)
Quarter: 2014Q1

REPORT INFORMATION
  Report Type: Spontaneous
  Country: JP (occurrence: None)
  Receive Date: 20130919
  Receipt Date: 20140212
  Transmission Date: 20141002
  Serious: Yes (Hospitalization)
  Sender: FDA-Public Use
  Company Number: DSJ-2013-19855

PATIENT
  Age: 88 Year
  Sex: Female
  Weight: 52 kg

DRUGS (4)
  1. OLMETEC [Suspect]
     Indication: HYPERTENSION
     Dosage: 20 MG (20 MG, 1 IN 1 D), PER ORAL
     Route: 048
     Dates: start: 20130619, end: 20130820
  2. LASIX [Suspect]
     Indication: HYPERTENSION
     Dosage: 20 MG (20 MG, 1 IN 1 D), PER ORAL
     Route: 048
     Dates: end: 20130820
  3. PARIET (RABEPRAZOLE SODIUM) (RABEPRAZOLE SODIUM) [Concomitant]
  4. CALBLOCK (AZELNIDIPINE)  (AZELNIDIPINE) [Concomitant]

REACTIONS (13)
  - Jaundice [None]
  - Aspartate aminotransferase increased [None]
  - Blood bilirubin increased [None]
  - Rash pruritic [None]
  - Liver disorder [None]
  - Prerenal failure [None]
  - Alanine aminotransferase increased [None]
  - Blood alkaline phosphatase increased [None]
  - Gamma-glutamyltransferase increased [None]
  - Biliary dilatation [None]
  - Bile duct cancer [None]
  - Jaundice cholestatic [None]
  - Dehydration [None]
